FAERS Safety Report 8775142 (Version 1)
Quarter: 2012Q4

REPORT INFORMATION
  Report Type: 
  Country: FR (occurrence: FR)
  Receive Date: 20120910
  Receipt Date: 20120910
  Transmission Date: 20130627
  Serious: Yes (Death, Life-Threatening, Hospitalization)
  Sender: FDA-Public Use
  Company Number: FR-AMGEN-FRASP2012055912

PATIENT
  Sex: Female

DRUGS (4)
  1. ENBREL [Suspect]
     Indication: RHEUMATOID ARTHRITIS
     Dosage: 1 DF, weekly
     Dates: start: 20120809, end: 20120809
  2. METHOTREXATE SODIUM [Suspect]
     Indication: CUTANEOUS LUPUS ERYTHEMATOSUS
     Dosage: 25 mg, weekly
     Dates: end: 201208
  3. CORTANCYL [Suspect]
     Indication: CUTANEOUS LUPUS ERYTHEMATOSUS
     Dosage: 60 mg, 1x/day
     Dates: end: 201208
  4. PLAQUENIL                          /00072602/ [Concomitant]
     Dosage: UNK

REACTIONS (2)
  - Multi-organ failure [Fatal]
  - Septic shock [Fatal]
